FAERS Safety Report 15696613 (Version 1)
Quarter: 2018Q4

REPORT INFORMATION
  Report Type: Spontaneous
  Country: US (occurrence: US)
  Receive Date: 20181206
  Receipt Date: 20181206
  Transmission Date: 20190205
  Serious: No
  Sender: FDA-Public Use
  Company Number: US-SUPERNUS PHARMACEUTICALS, INC.-2018SUP00239

PATIENT
  Age: 44 Year
  Sex: Female

DRUGS (6)
  1. CELEXA [Concomitant]
     Active Substance: CITALOPRAM HYDROBROMIDE
  2. OXTELLAR XR [Suspect]
     Active Substance: OXCARBAZEPINE
     Indication: HYPOAESTHESIA EYE
     Dosage: 600 MG, 1X/DAY IN THE MORNING
     Route: 048
  3. TECFIDERA [Concomitant]
     Active Substance: DIMETHYL FUMARATE
     Dosage: UNK
  4. CLONAZEPAM. [Concomitant]
     Active Substance: CLONAZEPAM
     Dosage: 2 DOSAGE UNITS, 1X/DAY
  5. TOPAMAX [Concomitant]
     Active Substance: TOPIRAMATE
     Dosage: 100 MG, 2X/DAY
  6. OXTELLAR XR [Suspect]
     Active Substance: OXCARBAZEPINE
     Indication: HYPOAESTHESIA EYE
     Dosage: 300 MG, 1X/DAY IN THE MORNING
     Route: 048

REACTIONS (5)
  - Acute sinusitis [Recovering/Resolving]
  - Blood pressure increased [Unknown]
  - Off label use [Not Recovered/Not Resolved]
  - Erythema [Recovered/Resolved]
  - Dyspnoea [Recovering/Resolving]

NARRATIVE: CASE EVENT DATE: 201807
